FAERS Safety Report 7764240-6 (Version None)
Quarter: 2011Q3

REPORT INFORMATION
  Report Type: 
  Country: None (occurrence: None)
  Receive Date: 20110921
  Receipt Date: 20110916
  Transmission Date: 20111222
  Serious: Yes (Death)
  Sender: FDA-Public Use
  Company Number: JP-ASTELLAS-2011US005918

PATIENT
  Age: 75 Year
  Sex: Male

DRUGS (4)
  1. INSULIN [Suspect]
     Indication: HYPERGLYCAEMIA
     Dosage: 15-20 U, UID/QD
     Route: 065
  2. ALDACTONE [Concomitant]
     Indication: PRODUCT USED FOR UNKNOWN INDICATION
     Dosage: UNK
     Route: 048
  3. PREDNISOLONE [Suspect]
     Indication: TUMOUR ASSOCIATED FEVER
     Dosage: 20-25 MG, UID/QD
     Route: 065
  4. AMBISOME [Interacting]
     Indication: PULMONARY MYCOSIS
     Dosage: 3-5 MG/KG, UID/QD
     Route: 042

REACTIONS (1)
  - CARDIAC FAILURE [None]
